FAERS Safety Report 10264356 (Version 1)
Quarter: 2014Q2

REPORT INFORMATION
  Report Type: Spontaneous
  Country: US (occurrence: None)
  Receive Date: 20140624
  Receipt Date: 20140624
  Transmission Date: 20141212
  Serious: Yes (Disabling)
  Sender: FDA-Public Use
  Company Number: None

PATIENT
  Age: 63 Year
  Sex: Male
  Weight: 95.26 kg

DRUGS (5)
  1. GLIMEPIRIDE [Suspect]
     Indication: DIABETES MELLITUS
     Dosage: 4MG, 1 TABLET, 2X A DAY, BY MOUTH
     Route: 048
     Dates: start: 20130802, end: 20130806
  2. INSULIN [Concomitant]
  3. LISINOPRIL [Concomitant]
  4. ROSUVASTATIN CALCIUM [Concomitant]
  5. EXTRA STRENGTH TYLENOL [Concomitant]

REACTIONS (1)
  - Blindness [None]
